FAERS Safety Report 6770566-5 (Version None)
Quarter: 2010Q2

REPORT INFORMATION
  Report Type: 
  Country: None (occurrence: None)
  Receive Date: 20100615
  Receipt Date: 20100607
  Transmission Date: 20101027
  Serious: Yes (Other)
  Sender: FDA-Public Use
  Company Number: PHHY2010JP37562

PATIENT

DRUGS (1)
  1. NEORAL [Suspect]
     Indication: SKIN DISORDER
     Route: 048

REACTIONS (1)
  - COLITIS ULCERATIVE [None]
